FAERS Safety Report 20182763 (Version 3)
Quarter: 2021Q4

REPORT INFORMATION
  Report Type: Report from Study
  Country: US (occurrence: US)
  Receive Date: 20211214
  Receipt Date: 20211228
  Transmission Date: 20220303
  Serious: Yes (Other)
  Sender: FDA-Public Use
  Company Number: US-GILEAD-2021-0561055

PATIENT
  Sex: Female

DRUGS (4)
  1. AMBRISENTAN [Suspect]
     Active Substance: AMBRISENTAN
     Indication: Pulmonary arterial hypertension
     Dosage: 10 MG, QD
     Route: 048
     Dates: start: 20211001
  2. TADALAFIL [Concomitant]
     Active Substance: TADALAFIL
  3. AMLODIPINE [Concomitant]
     Active Substance: AMLODIPINE BESYLATE
  4. BOSENTAN [Concomitant]
     Active Substance: BOSENTAN

REACTIONS (5)
  - Syncope [Unknown]
  - Peripheral swelling [Unknown]
  - Dizziness [Unknown]
  - Chest pain [Unknown]
  - Product use issue [Not Recovered/Not Resolved]
